FAERS Safety Report 7901132-3 (Version None)
Quarter: 2011Q4

REPORT INFORMATION
  Report Type: 
  Country: None (occurrence: None)
  Receive Date: 20111108
  Receipt Date: 20111101
  Transmission Date: 20120403
  Serious: Yes (Other)
  Sender: FDA-Public Use
  Company Number: BR-PFIZER INC-2011269010

PATIENT
  Sex: Female

DRUGS (2)
  1. GEODON [Suspect]
     Dosage: 80 MG, EVERY 12 HOURS
     Route: 048
     Dates: start: 20111028
  2. GEODON [Suspect]
     Indication: BIPOLAR DISORDER
     Dosage: 40 MG, UNK
     Route: 048
     Dates: start: 20111024

REACTIONS (3)
  - TONGUE PARALYSIS [None]
  - VIITH NERVE PARALYSIS [None]
  - DEFORMITY [None]
